FAERS Safety Report 22638204 (Version 2)
Quarter: 2025Q2

REPORT INFORMATION
  Report Type: Spontaneous
  Country: US (occurrence: US)
  Receive Date: 20230626
  Receipt Date: 20250511
  Transmission Date: 20250716
  Serious: Yes (Other)
  Sender: SANOFI AVENTIS
  Company Number: US-SANOFI-01012730

PATIENT
  Age: 60 Year
  Sex: Female
  Weight: 66 kg

DRUGS (10)
  1. DUPIXENT [Suspect]
     Active Substance: DUPILUMAB
     Indication: Dermatitis atopic
     Route: 058
     Dates: start: 20220224, end: 20220224
  2. DUPIXENT [Suspect]
     Active Substance: DUPILUMAB
     Dosage: 300 MG, QOW
     Route: 058
     Dates: start: 202203
  3. TRAMADOL HCL [Concomitant]
     Active Substance: TRAMADOL HYDROCHLORIDE
  4. ALLEGRA D 12HR [Concomitant]
     Dosage: UNK UNK, Q12H
  5. SIMVASTATIN [Concomitant]
     Active Substance: SIMVASTATIN
  6. MELOXICAM [Concomitant]
     Active Substance: MELOXICAM
  7. GABAPENTIN [Concomitant]
     Active Substance: GABAPENTIN
  8. ASPIRIN [Concomitant]
     Active Substance: ASPIRIN
  9. OXYCODONE HYDROCHLORIDE [Concomitant]
     Active Substance: OXYCODONE HYDROCHLORIDE
  10. ONDANSETRON HYDROCHLORIDE [Concomitant]
     Active Substance: ONDANSETRON HYDROCHLORIDE

REACTIONS (2)
  - Knee arthroplasty [Unknown]
  - Knee operation [Unknown]

NARRATIVE: CASE EVENT DATE: 20230101
